FAERS Safety Report 11082281 (Version 1)
Quarter: 2015Q2

REPORT INFORMATION
  Report Type: Spontaneous
  Country: US (occurrence: US)
  Receive Date: 20150501
  Receipt Date: 20150501
  Transmission Date: 20150821
  Serious: Yes (Death, Hospitalization)
  Sender: FDA-Public Use
  Company Number: US-BEH-2015050600

PATIENT
  Age: 72 Year
  Sex: Male
  Weight: 83.5 kg

DRUGS (27)
  1. PRIVIGEN [Suspect]
     Active Substance: HUMAN IMMUNOGLOBULIN G
     Dosage: 5 GM VIAL; 400 MG/KG DAILY FOR 4 DAYS EVERY 3 WEEKS
     Route: 042
     Dates: end: 20150402
  2. EPIPEN [Concomitant]
     Active Substance: EPINEPHRINE
     Route: 030
  3. LMX [Concomitant]
     Active Substance: LIDOCAINE
     Dosage: 4%
     Route: 061
  4. ZOLPIDEM TARTRATE. [Concomitant]
     Active Substance: ZOLPIDEM TARTRATE
     Dosage: 15 MG HS
     Route: 048
  5. VENTOLIN [Concomitant]
     Active Substance: ALBUTEROL SULFATE
     Dosage: 2 INH QID
     Route: 055
  6. LORATADINE D [Concomitant]
     Active Substance: LORATADINE\PSEUDOEPHEDRINE SULFATE
     Dosage: 10 MG-240 MG DAILY
     Route: 048
  7. OXYGEN. [Concomitant]
     Active Substance: OXYGEN
     Dosage: 2L/MIN
  8. LOSARTAN [Concomitant]
     Active Substance: LOSARTAN
     Route: 048
  9. HEPARIN [Concomitant]
     Active Substance: HEPARIN SODIUM
     Dosage: 10 UNITS/ML
     Route: 042
  10. LASIX [Concomitant]
     Active Substance: FUROSEMIDE
  11. AMIODARONE [Concomitant]
     Active Substance: AMIODARONE
     Route: 049
  12. PRIVIGEN [Suspect]
     Active Substance: HUMAN IMMUNOGLOBULIN G
     Indication: CHRONIC INFLAMMATORY DEMYELINATING POLYRADICULONEUROPATHY
     Dosage: 10 GM VIAL; 400 MG/KG DAILY FOR 4 DAYS EVERY 3 WEEKS
     Route: 042
     Dates: end: 20150402
  13. DIPHENHYDRAMINE [Concomitant]
     Active Substance: DIPHENHYDRAMINE
     Route: 048
  14. SODIUM CHLORIDE. [Concomitant]
     Active Substance: SODIUM CHLORIDE
     Dosage: 0.9%
     Route: 042
  15. ALDACTONE [Concomitant]
     Active Substance: SPIRONOLACTONE
     Route: 048
  16. FUROSEMIDE. [Concomitant]
     Active Substance: FUROSEMIDE
     Route: 048
  17. ASPIRIN. [Concomitant]
     Active Substance: ASPIRIN
     Route: 048
  18. DALIRESP [Concomitant]
     Active Substance: ROFLUMILAST
     Route: 048
  19. NEUPRO [Concomitant]
     Active Substance: ROTIGOTINE
     Dosage: 4 MG/24 HOUR
     Route: 061
  20. PRIVIGEN [Suspect]
     Active Substance: HUMAN IMMUNOGLOBULIN G
     Dosage: 20 GM VIAL; 400 MG/KG DAILY FOR 4 DAYS EVERY 3 WEEKS
     Route: 042
     Dates: end: 20150402
  21. ACETAMINOPHEN. [Concomitant]
     Active Substance: ACETAMINOPHEN
     Route: 048
  22. ANTIPYRINE AND BENZOCAINE [Concomitant]
     Active Substance: ANTIPYRINE\BENZOCAINE
     Dosage: 1 DOSE TID
     Route: 031
  23. VITAMIN B12 [Concomitant]
     Active Substance: CYANOCOBALAMIN
     Dosage: 1 DOSE QM
     Route: 030
  24. NOVOLOG [Concomitant]
     Active Substance: INSULIN ASPART
     Route: 058
  25. LANTUS [Concomitant]
     Active Substance: INSULIN GLARGINE
     Route: 058
  26. WARFARIN [Concomitant]
     Active Substance: WARFARIN
     Dosage: 5 MG 5/WEEK
     Route: 048
  27. COREG [Concomitant]
     Active Substance: CARVEDILOL
     Route: 048

REACTIONS (2)
  - Dyspnoea [Unknown]
  - Death [Fatal]

NARRATIVE: CASE EVENT DATE: 20150402
